FAERS Safety Report 13408890 (Version 3)
Quarter: 2019Q3

REPORT INFORMATION
  Report Type: Spontaneous
  Country: US (occurrence: US)
  Receive Date: 20170406
  Receipt Date: 20190726
  Transmission Date: 20191004
  Serious: No
  Sender: FDA-Public Use
  Company Number: US-JNJFOC-20170224822

PATIENT
  Sex: Male

DRUGS (3)
  1. RISPERDAL [Suspect]
     Active Substance: RISPERIDONE
     Indication: DEPRESSION
     Route: 048
     Dates: end: 19970911
  2. RISPERDAL [Suspect]
     Active Substance: RISPERIDONE
     Indication: BEHAVIOUR DISORDER
     Route: 048
     Dates: start: 19970801
  3. RISPERDAL [Suspect]
     Active Substance: RISPERIDONE
     Indication: LEARNING DISORDER

REACTIONS (3)
  - Emotional distress [Unknown]
  - Therapy cessation [Unknown]
  - Gynaecomastia [Unknown]
